FAERS Safety Report 19468941 (Version 2)
Quarter: 2021Q4

REPORT INFORMATION
  Report Type: Spontaneous
  Country: FR (occurrence: FR)
  Receive Date: 20210628
  Receipt Date: 20211101
  Transmission Date: 20220304
  Serious: Yes (Hospitalization)
  Sender: FDA-Public Use
  Company Number: None

PATIENT
  Age: 68 Year
  Sex: Female

DRUGS (3)
  1. GEMCITABINE HYDROCHLORIDE [Suspect]
     Active Substance: GEMCITABINE HYDROCHLORIDE
     Indication: Cutaneous T-cell lymphoma
     Dosage: 1000 MG/M2, CYCLICAL
     Route: 042
     Dates: start: 20210406, end: 20210517
  2. METHYLPREDNISOLONE [Suspect]
     Active Substance: METHYLPREDNISOLONE
     Indication: Chemotherapy side effect prophylaxis
     Dosage: 40 MG, CYCLICAL
     Route: 042
     Dates: start: 20210406, end: 20210517
  3. ONDANSETRON [Concomitant]
     Active Substance: ONDANSETRON
     Indication: Prophylaxis of nausea and vomiting
     Dosage: 8 MG, CYCLICAL
     Route: 042
     Dates: start: 20210406

REACTIONS (5)
  - Eosinophilia [Recovered/Resolved]
  - Hepatic enzyme increased [Recovered/Resolved]
  - Rash maculo-papular [Recovered/Resolved]
  - Pyrexia [Recovered/Resolved]
  - Off label use [Unknown]

NARRATIVE: CASE EVENT DATE: 20210517
